FAERS Safety Report 9137135 (Version 1)
Quarter: 2013Q1

REPORT INFORMATION
  Report Type: Spontaneous
  Country: US (occurrence: US)
  Receive Date: 20130219
  Receipt Date: 20130219
  Transmission Date: 20140127
  Serious: No
  Sender: FDA-Public Use
  Company Number: US-BRISTOL-MYERS SQUIBB COMPANY-16808271

PATIENT
  Age: 68 Year
  Sex: Female

DRUGS (1)
  1. ORENCIA [Suspect]
     Indication: RHEUMATOID ARTHRITIS
     Dosage: NEXT IS SCHEDULED FOR 27JUL2012?VIAL
     Route: 042
     Dates: start: 20120713

REACTIONS (2)
  - Nail infection [Not Recovered/Not Resolved]
  - Drug ineffective [Unknown]
